FAERS Safety Report 9292325 (Version 1)
Quarter: 2013Q2

REPORT INFORMATION
  Report Type: Spontaneous
  Country: US (occurrence: None)
  Receive Date: 20130515
  Receipt Date: 20130515
  Transmission Date: 20140414
  Serious: No
  Sender: FDA-Public Use
  Company Number: None

PATIENT
  Age: 87 Year
  Sex: Male
  Weight: 93.9 kg

DRUGS (1)
  1. NAROPIN [Suspect]
     Indication: CARPAL TUNNEL SYNDROME
     Dosage: 20 CC X1 SUBQ
     Route: 058
     Dates: start: 20130430

REACTIONS (1)
  - Drug effect decreased [None]
